FAERS Safety Report 9476413 (Version 1)
Quarter: 2013Q3

REPORT INFORMATION
  Report Type: Spontaneous
  Country: CA (occurrence: CA)
  Receive Date: 20130826
  Receipt Date: 20130826
  Transmission Date: 20140515
  Serious: Yes (Other)
  Sender: FDA-Public Use
  Company Number: CA-BAYER-2013-101228

PATIENT
  Sex: Male

DRUGS (2)
  1. ASPIRIN 81MG [Suspect]
     Indication: ISCHAEMIC HEART DISEASE PROPHYLAXIS
     Dosage: 1 DF, DAILY
     Dates: start: 200603
  2. ASPIRIN 81MG [Suspect]
     Indication: CEREBROVASCULAR ACCIDENT PROPHYLAXIS

REACTIONS (1)
  - Myocardial infarction [None]
